FAERS Safety Report 6221960-2 (Version None)
Quarter: 2009Q2

REPORT INFORMATION
  Report Type: 
  Country: None (occurrence: None)
  Receive Date: 20090608
  Receipt Date: 20090608
  Transmission Date: 20091009
  Serious: No
  Sender: FDA-Public Use
  Company Number: None

PATIENT

DRUGS (1)
  1. VARENICLINE [Suspect]
     Dosage: 1MG, BID, ORAL
     Route: 048
     Dates: start: 20081216, end: 20090112

REACTIONS (7)
  - AGITATION [None]
  - CHILLS [None]
  - EMOTIONAL DISORDER [None]
  - HYPERHIDROSIS [None]
  - INSOMNIA [None]
  - POOR QUALITY SLEEP [None]
  - PYREXIA [None]
